FAERS Safety Report 5866074-6 (Version None)
Quarter: 2008Q3

REPORT INFORMATION
  Report Type: 
  Country: None (occurrence: None)
  Receive Date: 20080829
  Receipt Date: 20080827
  Transmission Date: 20090109
  Serious: Yes (Hospitalization)
  Sender: FDA-Public Use
  Company Number: US-BOEHRINGER INGELHEIM GMBH, GERMANY-2008-BP-13390BP

PATIENT
  Age: 58 Year
  Sex: Male

DRUGS (4)
  1. ZANTAC 150 [Suspect]
     Indication: DYSPEPSIA
     Route: 048
     Dates: start: 20020101
  2. ZANTAC 150 [Suspect]
  3. HYDROCHLOROTHIAZIDE [Concomitant]
     Indication: HYPERTENSION
  4. ENALAPRIL MALEATE [Concomitant]
     Indication: HYPERTENSION

REACTIONS (5)
  - CYTOMEGALOVIRUS INFECTION [None]
  - PAIN IN EXTREMITY [None]
  - PULMONARY EMBOLISM [None]
  - PYREXIA [None]
  - THROMBOSIS [None]
